FAERS Safety Report 12070315 (Version 1)
Quarter: 2016Q1

REPORT INFORMATION
  Report Type: Spontaneous
  Country: US (occurrence: US)
  Receive Date: 20160211
  Receipt Date: 20160211
  Transmission Date: 20160526
  Serious: Yes (Death, Hospitalization)
  Sender: FDA-Public Use
  Company Number: US-PERRIGO-16US001312

PATIENT
  Age: 25 Year
  Sex: Female

DRUGS (2)
  1. GOOD NEIGHBOR PHARMACY ANTI DIARRHEAL [Suspect]
     Active Substance: LOPERAMIDE HYDROCHLORIDE
     Indication: INTENTIONAL PRODUCT MISUSE
  2. GOOD NEIGHBOR PHARMACY ANTI DIARRHEAL [Suspect]
     Active Substance: LOPERAMIDE HYDROCHLORIDE
     Indication: DRUG WITHDRAWAL SYNDROME
     Dosage: 30 TO 60 TABLETS, UNKNOWN
     Route: 048

REACTIONS (16)
  - Drug abuse [Unknown]
  - Bradycardia [Unknown]
  - Hypotension [Unknown]
  - Ventricular tachycardia [Unknown]
  - Somnolence [Unknown]
  - Toxicity to various agents [Fatal]
  - Electrocardiogram QT prolonged [Unknown]
  - Nystagmus [Unknown]
  - Nausea [Unknown]
  - Vomiting [Unknown]
  - Constipation [Unknown]
  - Syncope [Unknown]
  - Ejection fraction decreased [Unknown]
  - Abdominal pain [Unknown]
  - Ventricular hypokinesia [Unknown]
  - Dizziness [Unknown]
